FAERS Safety Report 17274104 (Version 4)
Quarter: 2020Q2

REPORT INFORMATION
  Report Type: Report from Study
  Country: PE (occurrence: PE)
  Receive Date: 20200115
  Receipt Date: 20200420
  Transmission Date: 20200713
  Serious: Yes (Other)
  Sender: FDA-Public Use
  Company Number: PE-SEATTLE GENETICS-2020SGN00056

PATIENT
  Sex: Male

DRUGS (1)
  1. BRENTUXIMAB VEDOTIN-MPI [Suspect]
     Active Substance: BRENTUXIMAB VEDOTIN
     Indication: HODGKIN^S DISEASE
     Dosage: 80 MG, UNK
     Route: 042
     Dates: start: 20191220, end: 20200204

REACTIONS (6)
  - Diarrhoea [Unknown]
  - Hodgkin^s disease [Unknown]
  - Platelet count decreased [Unknown]
  - Sepsis [Unknown]
  - Vomiting [Unknown]
  - Fatigue [Unknown]
